FAERS Safety Report 18811662 (Version 1)
Quarter: 2021Q1

REPORT INFORMATION
  Report Type: Spontaneous
  Country: US (occurrence: US)
  Receive Date: 20210130
  Receipt Date: 20210130
  Transmission Date: 20210419
  Serious: No
  Sender: FDA-Public Use
  Company Number: US-DRREDDYS-USA/USA/21/0131305

PATIENT
  Age: 18 Year
  Sex: Male

DRUGS (1)
  1. ZENATANE [Suspect]
     Active Substance: ISOTRETINOIN
     Indication: PRODUCT USED FOR UNKNOWN INDICATION
     Dosage: RMA ISSUE DATE: 7/23/2020 6:37:16 PM, 8/24/2020 1:24:14 PM, 9/28/2020 1:00:10 PM, 10/26/2020 2:39:32
     Route: 048

REACTIONS (1)
  - Hepatic enzyme increased [Unknown]
